FAERS Safety Report 25064328 (Version 4)
Quarter: 2025Q2

REPORT INFORMATION
  Report Type: Report from Study
  Country: CA (occurrence: CA)
  Receive Date: 20250311
  Receipt Date: 20250409
  Transmission Date: 20250716
  Serious: Yes (Other)
  Sender: NOVARTIS
  Company Number: CA-002147023-NVSC2025CA040394

PATIENT
  Sex: Female

DRUGS (2)
  1. LEQVIO [Suspect]
     Active Substance: INCLISIRAN SODIUM
     Indication: Type IIa hyperlipidaemia
     Route: 058
     Dates: start: 20241209
  2. LEQVIO [Suspect]
     Active Substance: INCLISIRAN SODIUM
     Route: 058
     Dates: start: 20250317

REACTIONS (8)
  - Pneumonia [Recovered/Resolved]
  - Oesophageal infection [Recovered/Resolved]
  - Influenza [Recovering/Resolving]
  - Sinusitis [Recovered/Resolved]
  - Injection site pain [Unknown]
  - Injection site erythema [Unknown]
  - Injection site swelling [Unknown]
  - Injection site pruritus [Unknown]

NARRATIVE: CASE EVENT DATE: 20250305
